FAERS Safety Report 18039337 (Version 2)
Quarter: 2021Q2

REPORT INFORMATION
  Report Type: Spontaneous
  Country: US (occurrence: US)
  Receive Date: 20200717
  Receipt Date: 20210629
  Transmission Date: 20210717
  Serious: Yes (Hospitalization)
  Sender: FDA-Public Use
  Company Number: US-TEVA-2020-US-1802320

PATIENT
  Age: 48 Year
  Sex: Female
  Weight: 76.2 kg

DRUGS (1)
  1. ESTRACE [Suspect]
     Active Substance: ESTRADIOL
     Indication: HOT FLUSH
     Route: 048
     Dates: start: 199407, end: 199408

REACTIONS (5)
  - Drug intolerance [Unknown]
  - Drug ineffective [Unknown]
  - Pancreatitis [Recovered/Resolved]
  - Portal vein occlusion [Recovered/Resolved]
  - Blood triglycerides abnormal [Recovered/Resolved]

NARRATIVE: CASE EVENT DATE: 1994
